FAERS Safety Report 9649067 (Version 1)
Quarter: 2013Q4

REPORT INFORMATION
  Report Type: Spontaneous
  Country: US (occurrence: US)
  Receive Date: 20131028
  Receipt Date: 20131028
  Transmission Date: 20140711
  Serious: Yes (Other)
  Sender: FDA-Public Use
  Company Number: CHPA2013US016201

PATIENT
  Sex: Female

DRUGS (2)
  1. GAS-X EXTRA STRENGTH SOFTGELS [Suspect]
     Dosage: 2 DF, ONCE/SINGLE
     Route: 048
     Dates: start: 20131023, end: 20131023
  2. ANTIHYPERTENSIVES [Concomitant]

REACTIONS (1)
  - Hypertension [Not Recovered/Not Resolved]
